FAERS Safety Report 7950521-X (Version None)
Quarter: 2011Q4

REPORT INFORMATION
  Report Type: 
  Country: None (occurrence: None)
  Receive Date: 20111130
  Receipt Date: 20111118
  Transmission Date: 20120403
  Serious: Yes (Hospitalization, Disabling)
  Sender: FDA-Public Use
  Company Number: US-ASTRAZENECA-2011SE57561

PATIENT
  Age: 24157 Day
  Sex: Female
  Weight: 78 kg

DRUGS (6)
  1. GLYBURIDE [Concomitant]
     Indication: DIABETES MELLITUS
  2. NEXIUM [Suspect]
     Indication: GASTROOESOPHAGEAL REFLUX DISEASE
     Route: 048
     Dates: start: 20020915, end: 20110429
  3. ENALAPRIL MALEATE [Concomitant]
     Indication: BLOOD PRESSURE
  4. ASPIRIN [Concomitant]
     Indication: ANTICOAGULANT THERAPY
  5. NEXIUM [Suspect]
     Dosage: DAILY
     Route: 048
     Dates: start: 20070101, end: 20110101
  6. METFORMIN HCL [Concomitant]
     Indication: DIABETES MELLITUS

REACTIONS (7)
  - JOINT INJURY [None]
  - ACCIDENT [None]
  - MUSCULAR WEAKNESS [None]
  - HEADACHE [None]
  - UPPER LIMB FRACTURE [None]
  - MUSCLE SPASMS [None]
  - FALL [None]
